FAERS Safety Report 16752811 (Version 3)
Quarter: 2019Q4

REPORT INFORMATION
  Report Type: Report from Study
  Country: US (occurrence: US)
  Receive Date: 20190829
  Receipt Date: 20191212
  Transmission Date: 20200122
  Serious: Yes (Other)
  Sender: FDA-Public Use
  Company Number: US-ROCHE-2340752

PATIENT
  Age: 61 Year
  Sex: Female

DRUGS (10)
  1. AMPYRA [Concomitant]
     Active Substance: DALFAMPRIDINE
  2. OCREVUS [Suspect]
     Active Substance: OCRELIZUMAB
     Indication: PRIMARY PROGRESSIVE MULTIPLE SCLEROSIS
     Dosage: DATE OF TREATMENT:  06/DEC/2018
     Route: 065
     Dates: start: 20170526
  3. OCREVUS [Suspect]
     Active Substance: OCRELIZUMAB
     Route: 065
     Dates: start: 20170609
  4. OCREVUS [Suspect]
     Active Substance: OCRELIZUMAB
     Route: 065
     Dates: start: 20180607
  5. OCREVUS [Suspect]
     Active Substance: OCRELIZUMAB
     Route: 065
     Dates: start: 20191005
  6. COENZYME Q10 [Concomitant]
     Active Substance: UBIDECARENONE
  7. BABY ASPIRIN [Concomitant]
     Active Substance: ASPIRIN
  8. OCREVUS [Suspect]
     Active Substance: OCRELIZUMAB
     Route: 065
     Dates: start: 20171207
  9. OCREVUS [Suspect]
     Active Substance: OCRELIZUMAB
     Route: 065
     Dates: start: 20181206
  10. OCREVUS [Suspect]
     Active Substance: OCRELIZUMAB
     Route: 065
     Dates: start: 20181204

REACTIONS (4)
  - Lung adenocarcinoma [Recovering/Resolving]
  - Off label use [Unknown]
  - Positron emission tomogram abnormal [Unknown]
  - Intentional product use issue [Unknown]

NARRATIVE: CASE EVENT DATE: 201804
